FAERS Safety Report 22055537 (Version 1)
Quarter: 2023Q1

REPORT INFORMATION
  Report Type: Spontaneous
  Country: PT (occurrence: PT)
  Receive Date: 20230302
  Receipt Date: 20230302
  Transmission Date: 20230417
  Serious: Yes (Other)
  Sender: FDA-Public Use
  Company Number: None

PATIENT
  Age: 49 Year
  Sex: Male
  Weight: 75 kg

DRUGS (1)
  1. OPTIRAY 350 [Suspect]
     Active Substance: IOVERSOL
     Indication: Angiocardiogram
     Route: 042
     Dates: start: 20230208, end: 20230208

REACTIONS (6)
  - Pruritus [Recovered/Resolved]
  - Paraesthesia oral [Recovered/Resolved]
  - Contrast media reaction [Recovered/Resolved]
  - Erythema [Recovered/Resolved]
  - Lip oedema [Recovered/Resolved]
  - Rash papular [Recovered/Resolved]

NARRATIVE: CASE EVENT DATE: 20230208
